FAERS Safety Report 13104833 (Version 3)
Quarter: 2017Q1

REPORT INFORMATION
  Report Type: Spontaneous
  Country: US (occurrence: US)
  Receive Date: 20170111
  Receipt Date: 20170223
  Transmission Date: 20170428
  Serious: No
  Sender: FDA-Public Use
  Company Number: US-PFIZER INC-2017011097

PATIENT
  Age: 51 Year
  Sex: Female
  Weight: 88 kg

DRUGS (3)
  1. ESTRING [Suspect]
     Active Substance: ESTRADIOL
     Indication: VULVOVAGINAL DRYNESS
  2. ESTRING [Suspect]
     Active Substance: ESTRADIOL
     Indication: HOT FLUSH
     Dosage: 2 MG, CYCLIC
     Route: 067
     Dates: start: 201606
  3. TYLENOL EXTRA STRENGTH [Concomitant]
     Active Substance: ACETAMINOPHEN
     Indication: PAIN
     Dosage: 2 DF, AS NEEDED (ONCE OR TWICE A DAY)
     Route: 048
     Dates: start: 201612

REACTIONS (2)
  - Product quality issue [Not Recovered/Not Resolved]
  - Drug ineffective for unapproved indication [Not Recovered/Not Resolved]

NARRATIVE: CASE EVENT DATE: 20161225
